FAERS Safety Report 5126000-4 (Version None)
Quarter: 2006Q4

REPORT INFORMATION
  Report Type: 
  Country: None (occurrence: None)
  Receive Date: 20061010
  Receipt Date: 20061010
  Transmission Date: 20070319
  Serious: Yes (Other)
  Sender: FDA-Public Use
  Company Number: None

PATIENT
  Sex: Female
  Weight: 113.3993 kg

DRUGS (7)
  1. SEROQUEL [Suspect]
     Indication: AFFECTIVE DISORDER
     Dosage: 150MG 3 TIMES DAILY PO
     Route: 048
     Dates: start: 20060817, end: 20060913
  2. SEROQUEL [Suspect]
  3. BENZTROPINE MESYLATE [Concomitant]
  4. SULFASALAZINE [Concomitant]
  5. PAROXETINE HCL [Concomitant]
  6. LEVOXYL [Concomitant]
  7. VALPROIC ACID [Concomitant]

REACTIONS (1)
  - DYSTONIA [None]
